FAERS Safety Report 5269839-7 (Version None)
Quarter: 2007Q1

REPORT INFORMATION
  Report Type: 
  Country: None (occurrence: None)
  Receive Date: 20070320
  Receipt Date: 20070314
  Transmission Date: 20070707
  Serious: Yes (Death)
  Sender: FDA-Public Use
  Company Number: US-GLAXOSMITHKLINE-A0637879A

PATIENT
  Age: 39 Year
  Sex: Male

DRUGS (1)
  1. PAROXETINE HCL [Suspect]
     Indication: DRUG USE FOR UNKNOWN INDICATION
     Dosage: 20MG UNKNOWN
     Route: 048
     Dates: start: 20041001

REACTIONS (12)
  - ABNORMAL BEHAVIOUR [None]
  - AGITATION [None]
  - ANGER [None]
  - COMPLETED SUICIDE [None]
  - HEADACHE [None]
  - PARANOIA [None]
  - PERSONALITY CHANGE [None]
  - RESTLESSNESS [None]
  - ROAD TRAFFIC ACCIDENT [None]
  - SOLILOQUY [None]
  - STARING [None]
  - THINKING ABNORMAL [None]
